FAERS Safety Report 7519639-X (Version None)
Quarter: 2011Q2

REPORT INFORMATION
  Report Type: 
  Country: None (occurrence: None)
  Receive Date: 20110602
  Receipt Date: 20110525
  Transmission Date: 20111010
  Serious: Yes (Other)
  Sender: FDA-Public Use
  Company Number: A0929863A

PATIENT
  Sex: Female

DRUGS (2)
  1. FLOVENT [Suspect]
     Route: 055
     Dates: start: 20101201
  2. AMIODARONE HCL [Suspect]
     Route: 065

REACTIONS (3)
  - DRUG INTERACTION [None]
  - THERAPEUTIC RESPONSE DECREASED [None]
  - VENTRICULAR TACHYCARDIA [None]
